FAERS Safety Report 13455509 (Version 1)
Quarter: 2017Q2

REPORT INFORMATION
  Report Type: Spontaneous
  Country: US (occurrence: US)
  Receive Date: 20170419
  Receipt Date: 20170419
  Transmission Date: 20170830
  Serious: No
  Sender: FDA-Public Use
  Company Number: US-PFIZER INC-2017169281

PATIENT
  Age: 73 Year
  Sex: Female
  Weight: 60.32 kg

DRUGS (1)
  1. IBRANCE [Suspect]
     Active Substance: PALBOCICLIB
     Indication: BREAST CANCER METASTATIC
     Dosage: 125 MG, CYCLIC(DAYS 1-21 Q28 DAYS)
     Route: 048
     Dates: start: 20170209

REACTIONS (4)
  - Feeling abnormal [Unknown]
  - Pain in extremity [Unknown]
  - Peripheral swelling [Unknown]
  - Blister [Unknown]
